FAERS Safety Report 10627629 (Version 7)
Quarter: 2015Q1

REPORT INFORMATION
  Report Type: Report from Study
  Country: IT (occurrence: IT)
  Receive Date: 20141205
  Receipt Date: 20150305
  Transmission Date: 20150720
  Serious: Yes (Hospitalization)
  Sender: FDA-Public Use
  Company Number: IT-ROCHE-1499207

PATIENT
  Age: 49 Year
  Sex: Male
  Weight: 91.7 kg

DRUGS (13)
  1. VISMODEGIB [Suspect]
     Active Substance: VISMODEGIB
     Indication: BASAL CELL CARCINOMA
     Dosage: DATE OF LAST DOSE PRIOR TO SAE: 25/NOV/2014
     Route: 048
     Dates: start: 20130211, end: 20141126
  2. CARDICOR [Concomitant]
     Active Substance: BISOPROLOL
     Indication: CARDIAC FAILURE CHRONIC
     Route: 065
     Dates: start: 200301, end: 20141210
  3. COUMADIN [Concomitant]
     Active Substance: WARFARIN SODIUM
     Indication: PROPHYLAXIS
     Dosage: MONDAY - FRIDAY AND SUNDAY
     Route: 065
     Dates: start: 20130607
  4. ALLOPURINOL. [Concomitant]
     Active Substance: ALLOPURINOL
     Route: 065
     Dates: start: 200701
  5. COUMADIN [Concomitant]
     Active Substance: WARFARIN SODIUM
     Route: 065
     Dates: start: 20130412, end: 20130606
  6. COUMADIN [Concomitant]
     Active Substance: WARFARIN SODIUM
     Dosage: MONDAY - FRIDAY, AND SUNDAY
     Route: 065
     Dates: start: 200301, end: 20130312
  7. VALPRESSION [Concomitant]
     Active Substance: VALSARTAN
     Indication: CARDIAC FAILURE CHRONIC
     Route: 065
     Dates: start: 200301
  8. COUMADIN [Concomitant]
     Active Substance: WARFARIN SODIUM
     Dosage: SATURDAY
     Route: 065
     Dates: start: 20130607
  9. CARDICOR [Concomitant]
     Active Substance: BISOPROLOL
     Route: 065
     Dates: start: 20141211
  10. COUMADIN [Concomitant]
     Active Substance: WARFARIN SODIUM
     Route: 065
     Dates: start: 20130313, end: 20140411
  11. ESAPENT [Concomitant]
     Indication: PROPHYLAXIS
     Route: 065
     Dates: start: 200301
  12. COUMADIN [Concomitant]
     Active Substance: WARFARIN SODIUM
     Dosage: SATURDAY
     Route: 065
     Dates: start: 200301, end: 20130312
  13. OLPRESS [Concomitant]
     Active Substance: OLMESARTAN MEDOXOMIL
     Indication: CARDIAC FAILURE CHRONIC
     Route: 065
     Dates: start: 200301

REACTIONS (1)
  - Ejection fraction decreased [Recovered/Resolved]

NARRATIVE: CASE EVENT DATE: 20141124
